FAERS Safety Report 9336916 (Version 2)
Quarter: 2016Q1

REPORT INFORMATION
  Report Type: Spontaneous
  Country: GB (occurrence: GB)
  Receive Date: 20130607
  Receipt Date: 20160219
  Transmission Date: 20160526
  Serious: Yes (Other)
  Sender: FDA-Public Use
  Company Number: GB-BRISTOL-MYERS SQUIBB COMPANY-18948935

PATIENT
  Age: 39 Year
  Sex: Female

DRUGS (2)
  1. TRIAMCINOLONE ACETONIDE. [Suspect]
     Active Substance: TRIAMCINOLONE ACETONIDE
     Indication: HIV INFECTION
     Dosage: 40 MG, UNK
     Route: 065
  2. KALETRA [Interacting]
     Active Substance: LOPINAVIR\RITONAVIR
     Indication: HIV INFECTION
     Dosage: LOPINAVIR 200MG/RITONAVIR50MG
     Route: 065

REACTIONS (3)
  - Drug interaction [Unknown]
  - Product use issue [Unknown]
  - Cushing^s syndrome [Unknown]
